FAERS Safety Report 4289915-5 (Version None)
Quarter: 2004Q1

REPORT INFORMATION
  Report Type: 
  Country: None (occurrence: None)
  Receive Date: 20040209
  Receipt Date: 20040114
  Transmission Date: 20041129
  Serious: Yes (Hospitalization, Other)
  Sender: FDA-Public Use
  Company Number: 200410114EU

PATIENT
  Age: 65 Year
  Sex: Female
  Weight: 60 kg

DRUGS (3)
  1. TAXOTERE [Suspect]
     Indication: BREAST CANCER
     Route: 042
     Dates: start: 20031103, end: 20031229
  2. GEMCITABIN [Suspect]
     Indication: BREAST CANCER
     Route: 042
     Dates: start: 20031027, end: 20031229
  3. PREDNISONE [Concomitant]
     Dates: start: 20031222, end: 20031224

REACTIONS (18)
  - AMNESIA [None]
  - APATHY [None]
  - BLOOD CALCIUM DECREASED [None]
  - BLOOD CREATINE DECREASED [None]
  - BLOOD GLUCOSE INCREASED [None]
  - C-REACTIVE PROTEIN INCREASED [None]
  - CONFUSIONAL STATE [None]
  - DYSPNOEA [None]
  - EYE MOVEMENT DISORDER [None]
  - HAEMOGLOBIN DECREASED [None]
  - MALIGNANT PLEURAL EFFUSION [None]
  - OXYGEN SATURATION DECREASED [None]
  - PLEURAL EFFUSION [None]
  - PO2 DECREASED [None]
  - PSYCHOTIC DISORDER [None]
  - PYREXIA [None]
  - UNRESPONSIVE TO PAIN STIMULI [None]
  - WHITE BLOOD CELL COUNT INCREASED [None]
